APPROVED DRUG PRODUCT: TRAZODONE HYDROCHLORIDE
Active Ingredient: TRAZODONE HYDROCHLORIDE
Strength: 300MG
Dosage Form/Route: TABLET;ORAL
Application: A217740 | Product #004 | TE Code: AB
Applicant: GRAVITI PHARMACEUTICALS PRIVATE LTD
Approved: Aug 27, 2024 | RLD: No | RS: No | Type: RX